FAERS Safety Report 12659934 (Version 1)
Quarter: 2016Q3

REPORT INFORMATION
  Report Type: Spontaneous
  Country: US (occurrence: US)
  Receive Date: 20160817
  Receipt Date: 20160817
  Transmission Date: 20161109
  Serious: No
  Sender: FDA-Public Use
  Company Number: US-SHIRE-2016DX000231

PATIENT

DRUGS (3)
  1. CINRYZE [Suspect]
     Active Substance: HUMAN C1-ESTERASE INHIBITOR
     Indication: PRODUCT USED FOR UNKNOWN INDICATION
     Dosage: 1000 IU, 1 TIME/S EVERY 3 DAYS
     Route: 065
     Dates: start: 20160701
  2. KALBITOR [Suspect]
     Active Substance: ECALLANTIDE
     Dosage: UNKNOWN
     Route: 065
  3. KALBITOR [Suspect]
     Active Substance: ECALLANTIDE
     Dosage: 1X/DAY:QD
     Route: 065
     Dates: start: 20160703, end: 20160703

REACTIONS (1)
  - Diarrhoea [Not Recovered/Not Resolved]

NARRATIVE: CASE EVENT DATE: 20160702
